FAERS Safety Report 14618803 (Version 5)
Quarter: 2018Q2

REPORT INFORMATION
  Report Type: Report from Study
  Country: US (occurrence: US)
  Receive Date: 20180309
  Receipt Date: 20180601
  Transmission Date: 20180711
  Serious: Yes (Hospitalization)
  Sender: FDA-Public Use
  Company Number: US-PFIZER INC-2018068064

PATIENT
  Age: 89 Year
  Sex: Male
  Weight: 72.3 kg

DRUGS (19)
  1. PEMBROLIZUMAB. [Suspect]
     Active Substance: PEMBROLIZUMAB
     Dosage: 200 MG, EVERY 3 WEEKS
     Route: 042
     Dates: start: 20180220
  2. XARELTO [Concomitant]
     Active Substance: RIVAROXABAN
     Dosage: 10 MG, UNK
     Dates: start: 201201
  3. KETOCONAZOLE. [Concomitant]
     Active Substance: KETOCONAZOLE
     Dosage: 2 %, UNK
     Dates: start: 200701
  4. AMBIEN [Concomitant]
     Active Substance: ZOLPIDEM TARTRATE
     Dosage: 10 MG, UNK
     Dates: start: 200401
  5. SYNTHROID [Concomitant]
     Active Substance: LEVOTHYROXINE SODIUM
     Dosage: 50 UG, UNK
     Dates: start: 199501
  6. AXITINIB [Suspect]
     Active Substance: AXITINIB
     Dosage: 5 MG, SINGLE (ONCE)
     Route: 048
     Dates: start: 20180220, end: 20180220
  7. PEMBROLIZUMAB. [Suspect]
     Active Substance: PEMBROLIZUMAB
     Indication: RENAL CELL CARCINOMA
     Dosage: 200 MG, EVERY 3 WEEKS (VOLUME OF INFUSION 118 ML)
     Route: 042
     Dates: start: 20180126, end: 20180126
  8. HYDROCORTISONE. [Concomitant]
     Active Substance: HYDROCORTISONE
     Dosage: 2.5 %, UNK
     Dates: start: 200701
  9. OMEPRAZOLE. [Concomitant]
     Active Substance: OMEPRAZOLE
     Dosage: 20 MG, UNK
     Dates: start: 197901
  10. AXITINIB [Suspect]
     Active Substance: AXITINIB
     Indication: RENAL CELL CARCINOMA
     Dosage: 5 MG, 2X/DAY
     Route: 048
     Dates: start: 20180126, end: 20180203
  11. AXITINIB [Suspect]
     Active Substance: AXITINIB
     Dosage: 5 MG, SINGLE (ONCE)
     Route: 048
     Dates: start: 20180204, end: 20180204
  12. ALLOPURINOL. [Concomitant]
     Active Substance: ALLOPURINOL
     Dosage: 100 MG, UNK
     Dates: start: 200701
  13. METFORMIN [Concomitant]
     Active Substance: METFORMIN HYDROCHLORIDE
     Dosage: 500 MG, UNK
     Dates: start: 201201
  14. VITAMINS [Concomitant]
     Active Substance: VITAMINS
     Dosage: 1 DF, UNK
     Dates: start: 198801
  15. SENNA [Concomitant]
     Active Substance: SENNA LEAF\SENNOSIDES\SENNOSIDES A AND B
     Dosage: 1 DF, UNK
     Dates: start: 201301
  16. POLYETHYLENE GLYCOL [Concomitant]
     Active Substance: POLYETHYLENE GLYCOLS
     Dosage: 17 G, UNK
     Dates: start: 20131213
  17. METOPROLOL. [Concomitant]
     Active Substance: METOPROLOL
     Dosage: 25 MG, UNK
     Dates: start: 200701
  18. AXITINIB [Suspect]
     Active Substance: AXITINIB
     Dosage: 5 MG, 2X/DAY
     Route: 048
     Dates: start: 20180221
  19. GABAPENTIN. [Concomitant]
     Active Substance: GABAPENTIN
     Dosage: 300 MG, UNK
     Dates: start: 200701

REACTIONS (1)
  - Influenza [Recovered/Resolved]

NARRATIVE: CASE EVENT DATE: 20180202
